FAERS Safety Report 7222921-7 (Version None)
Quarter: 2011Q1

REPORT INFORMATION
  Report Type: 
  Country: None (occurrence: None)
  Receive Date: 20110106
  Receipt Date: 20110106
  Transmission Date: 20110831
  Serious: Yes (Hospitalization)
  Sender: FDA-Public Use
  Company Number: None

PATIENT
  Age: 80 Year
  Sex: Female
  Weight: 64.5 kg

DRUGS (5)
  1. PAXIL [Concomitant]
  2. COUMADIN [Suspect]
     Indication: ATRIAL FIBRILLATION
     Dosage: 8MG DAILY PO CHRONIC
     Route: 048
  3. TOPROL-XL [Concomitant]
  4. PROTONIX [Concomitant]
  5. FOSAMAX [Concomitant]

REACTIONS (2)
  - BLOOD DISORDER [None]
  - INTERNATIONAL NORMALISED RATIO INCREASED [None]
